FAERS Safety Report 20839062 (Version 1)
Quarter: 2022Q2

REPORT INFORMATION
  Report Type: Report from Study
  Country: US (occurrence: US)
  Receive Date: 20220517
  Receipt Date: 20220517
  Transmission Date: 20220721
  Serious: Yes (Hospitalization)
  Sender: FDA-Public Use
  Company Number: US-TEVA-2022-US-2036901

PATIENT
  Age: 5 Year
  Sex: Male
  Weight: 22.7 kg

DRUGS (10)
  1. METHOTREXATE [Suspect]
     Active Substance: METHOTREXATE
     Indication: Acute lymphocytic leukaemia
     Dosage: 12 MILLIGRAM DAILY;
     Route: 037
     Dates: start: 20190607
  2. CYCLOPHOSPHAMIDE [Suspect]
     Active Substance: CYCLOPHOSPHAMIDE
     Indication: Acute lymphocytic leukaemia
     Dosage: 840 MILLIGRAM DAILY;
     Route: 042
     Dates: start: 20190531
  3. THIOGUANINE [Suspect]
     Active Substance: THIOGUANINE
     Indication: Acute lymphocytic leukaemia
     Dosage: 52 MILLIGRAM DAILY;
     Route: 048
     Dates: start: 20190531
  4. CYTARABINE [Suspect]
     Active Substance: CYTARABINE
     Indication: Acute lymphocytic leukaemia
     Dosage: 63 MILLIGRAM DAILY;
     Route: 058
     Dates: start: 20190607
  5. RUXOLITINIB [Suspect]
     Active Substance: RUXOLITINIB
     Indication: Acute lymphocytic leukaemia
     Dosage: 80 MILLIGRAM DAILY;
     Route: 048
     Dates: start: 20190531
  6. NEURONTIN [Concomitant]
     Active Substance: GABAPENTIN
     Route: 065
     Dates: start: 20190517
  7. AUGMENTIN [Concomitant]
     Active Substance: AMOXICILLIN\CLAVULANATE POTASSIUM
     Route: 065
  8. AUGMENTIN [Concomitant]
     Active Substance: AMOXICILLIN\CLAVULANATE POTASSIUM
     Route: 065
     Dates: start: 20190607
  9. BACTRIM [Concomitant]
     Active Substance: SULFAMETHOXAZOLE\TRIMETHOPRIM
     Dates: start: 20181116
  10. SEPTRA [Concomitant]
     Active Substance: SULFAMETHOXAZOLE\TRIMETHOPRIM
     Route: 065
     Dates: start: 20181116

REACTIONS (1)
  - Febrile neutropenia [Not Recovered/Not Resolved]
